FAERS Safety Report 8399256 (Version 4)
Quarter: 2012Q4

REPORT INFORMATION
  Report Type: Report from Study
  Country: JP (occurrence: JP)
  Receive Date: 20120210
  Receipt Date: 20121106
  Transmission Date: 20130627
  Serious: Yes (Disabling)
  Sender: FDA-Public Use
  Company Number: JP-PFIZER INC-2012031233

PATIENT
  Age: 60 Year
  Sex: Male
  Weight: 76.9 kg

DRUGS (9)
  1. TEMSIROLIMUS [Suspect]
     Indication: METASTATIC RENAL CELL CARCINOMA
     Dosage: 25 mg, weekly
     Route: 042
     Dates: start: 20111101, end: 20111115
  2. LYRICA [Suspect]
     Dosage: 150 mg, 1x/day
     Route: 048
  3. FENTANYL [Suspect]
     Indication: METASTATIC PAIN
     Dosage: 4.2 + 2.1 mg/day
     Route: 062
  4. CHLOR-TRIMETON [Concomitant]
     Indication: PROPHYLAXIS
     Dosage: 10 mg, weekly
     Route: 042
     Dates: start: 20111101, end: 20111115
  5. CALONAL [Concomitant]
     Dosage: 75 mg, 4x/day
     Route: 048
  6. PANTOSIN [Concomitant]
     Dosage: 50 mg, 2x/day
     Route: 048
  7. MAGNESIUM OXIDE [Concomitant]
     Dosage: 1 g, 2x/day
     Route: 048
  8. NOVAMIN [Concomitant]
     Dosage: 2.5 mg, 2x/day
     Route: 048
  9. FERROMIA [Concomitant]
     Dosage: 25 mg, 2x/day
     Route: 048

REACTIONS (1)
  - Renal disorder [Not Recovered/Not Resolved]
